FAERS Safety Report 12059286 (Version 1)
Quarter: 2016Q1

REPORT INFORMATION
  Report Type: Spontaneous
  Country: None (occurrence: None)
  Receive Date: 20160209
  Receipt Date: 20160209
  Transmission Date: 20160526
  Serious: No
  Sender: FDA-Public Use
  Company Number: None

PATIENT

DRUGS (1)
  1. ALLPURINOL [Suspect]
     Active Substance: ALLOPURINOL

REACTIONS (1)
  - Renal disorder [None]
